FAERS Safety Report 22069973 (Version 1)
Quarter: 2023Q1

REPORT INFORMATION
  Report Type: Spontaneous
  Country: US (occurrence: US)
  Receive Date: 20230307
  Receipt Date: 20230307
  Transmission Date: 20230418
  Serious: No
  Sender: FDA-Public Use
  Company Number: US-TEVA-2023-US-2858899

PATIENT
  Age: 57 Year
  Sex: Male
  Weight: 119.3 kg

DRUGS (14)
  1. AUSTEDO [Suspect]
     Active Substance: DEUTETRABENAZINE
     Indication: Tardive dyskinesia
     Route: 065
  2. BENZTROPINE [Suspect]
     Active Substance: BENZTROPINE
     Indication: Product used for unknown indication
     Dosage: 2 MILLIGRAM DAILY;
     Route: 048
  3. FANAPT [Suspect]
     Active Substance: ILOPERIDONE
     Indication: Bipolar II disorder
     Dosage: 4 MILLIGRAM DAILY;
     Route: 048
     Dates: start: 20221213, end: 20221220
  4. FANAPT [Suspect]
     Active Substance: ILOPERIDONE
     Indication: Anxiety
  5. BUPROPION [Concomitant]
     Active Substance: BUPROPION
     Indication: Product used for unknown indication
     Dosage: 300 MILLIGRAM DAILY; 300 MG 24 HR TABLET,ORALLY EVERY BEDTIME
     Route: 048
  6. BUSPIRONE [Concomitant]
     Active Substance: BUSPIRONE HYDROCHLORIDE
     Indication: Product used for unknown indication
     Dosage: 60 MILLIGRAM DAILY;
     Route: 048
  7. LAMOTRIGINE [Concomitant]
     Active Substance: LAMOTRIGINE
     Indication: Product used for unknown indication
     Route: 048
  8. ASPIRIN [Concomitant]
     Active Substance: ASPIRIN
     Indication: Product used for unknown indication
     Dosage: 81 MILLIGRAM DAILY; 81 MILLIGRAM,DAILY
     Route: 048
  9. BETAMETHASONE\CLOTRIMAZOLE [Concomitant]
     Active Substance: BETAMETHASONE\CLOTRIMAZOLE
     Indication: Product used for unknown indication
     Dosage: 1-0.05 PERCENT,2 TIMES EVERY DAY
     Route: 061
  10. ENALAPRIL MALEATE [Concomitant]
     Active Substance: ENALAPRIL MALEATE
     Indication: Product used for unknown indication
     Dosage: 20 MILLIGRAM DAILY;
     Route: 048
  11. HYDROCHLOROTHIAZIDE [Concomitant]
     Active Substance: HYDROCHLOROTHIAZIDE
     Indication: Product used for unknown indication
     Dosage: 25 MILLIGRAM DAILY;
     Route: 048
  12. LEVOTHYROXINE [Concomitant]
     Active Substance: LEVOTHYROXINE
     Indication: Product used for unknown indication
     Dosage: 50 MICROGRAM DAILY;
     Route: 048
  13. METOPROLOL SUCCINATE [Concomitant]
     Active Substance: METOPROLOL SUCCINATE
     Indication: Product used for unknown indication
     Dosage: 50 MILLIGRAM DAILY;
     Route: 048
  14. SIMVASTATIN [Concomitant]
     Active Substance: SIMVASTATIN
     Indication: Product used for unknown indication
     Dosage: 80 MILLIGRAM DAILY; EXTENDED RELEASE 24 HR
     Route: 048

REACTIONS (3)
  - Hypotonia [Unknown]
  - Insomnia [Recovered/Resolved]
  - Dysarthria [Recovered/Resolved]

NARRATIVE: CASE EVENT DATE: 20221218
